FAERS Safety Report 5145260-7 (Version None)
Quarter: 2006Q4

REPORT INFORMATION
  Report Type: 
  Country: None (occurrence: None)
  Receive Date: 20060912
  Receipt Date: 20060711
  Transmission Date: 20070319
  Serious: Yes (Hospitalization)
  Sender: FDA-Public Use
  Company Number: 2006-BP-08010BP

PATIENT

DRUGS (1)
  1. VIRAMUNE [Suspect]
     Dosage: (200 MG)
     Dates: start: 20060101

REACTIONS (2)
  - HEPATOTOXICITY [None]
  - PYREXIA [None]
